FAERS Safety Report 21200869 (Version 1)
Quarter: 2022Q3

REPORT INFORMATION
  Report Type: Spontaneous
  Country: US (occurrence: None)
  Receive Date: 20220810
  Receipt Date: 20220810
  Transmission Date: 20221026
  Serious: Yes (Death)
  Sender: FDA-Public Use
  Company Number: None

PATIENT
  Age: 50 Year
  Sex: Female
  Weight: 61.23 kg

DRUGS (18)
  1. BRAFTOVI [Suspect]
     Active Substance: ENCORAFENIB
     Indication: Colon cancer
     Dosage: FREQUENCY : DAILY;?
     Route: 048
     Dates: end: 20220803
  2. AMLODIPINE [Concomitant]
     Active Substance: AMLODIPINE BESYLATE
  3. ATIVAN [Concomitant]
     Active Substance: LORAZEPAM
  4. BISACODYL [Concomitant]
     Active Substance: BISACODYL
  5. ELIQUIS [Concomitant]
     Active Substance: APIXABAN
  6. LACTULOSE [Concomitant]
     Active Substance: LACTULOSE
  7. LIDOCAINE [Concomitant]
     Active Substance: LIDOCAINE
  8. PRILOCAINE [Concomitant]
     Active Substance: PRILOCAINE
  9. MAALOX MAX [Concomitant]
     Active Substance: ALUMINUM HYDROXIDE\DIMETHICONE\MAGNESIUM HYDROXIDE
  10. METOPROLOL [Concomitant]
     Active Substance: METOPROLOL
  11. MIRALAX [Concomitant]
     Active Substance: POLYETHYLENE GLYCOL 3350
  12. NARCAN [Concomitant]
     Active Substance: NALOXONE HYDROCHLORIDE
  13. OXYCODONE [Concomitant]
     Active Substance: OXYCODONE
  14. PERCOCET [Concomitant]
     Active Substance: ACETAMINOPHEN\OXYCODONE HYDROCHLORIDE
  15. REGLAN [Concomitant]
     Active Substance: METOCLOPRAMIDE HYDROCHLORIDE
  16. SENNA [Concomitant]
     Active Substance: SENNA LEAF\SENNOSIDES\SENNOSIDES A AND B
  17. SODIUM BICARBONATE [Concomitant]
     Active Substance: SODIUM BICARBONATE
  18. VECTIBIX [Concomitant]
     Active Substance: PANITUMUMAB

REACTIONS (1)
  - Death [None]

NARRATIVE: CASE EVENT DATE: 20220803
